FAERS Safety Report 25220560 (Version 1)
Quarter: 2025Q2

REPORT INFORMATION
  Report Type: Spontaneous
  Country: US (occurrence: US)
  Receive Date: 20250421
  Receipt Date: 20250421
  Transmission Date: 20250717
  Serious: No
  Sender: LUPIN
  Company Number: US-LUPIN PHARMACEUTICALS INC.-2025-02898

PATIENT
  Age: 50 Year
  Weight: 86.168 kg

DRUGS (1)
  1. SERTRALINE HYDROCHLORIDE [Suspect]
     Active Substance: SERTRALINE HYDROCHLORIDE
     Indication: Anxiety
     Dosage: UNK, QD, ONE AND HALF TABLET
     Route: 065

REACTIONS (4)
  - Pruritus [Recovered/Resolved]
  - Gastrointestinal disorder [Recovered/Resolved]
  - Eructation [Recovered/Resolved]
  - Diarrhoea [Recovered/Resolved]
